FAERS Safety Report 17574505 (Version 2)
Quarter: 2020Q1

REPORT INFORMATION
  Report Type: Spontaneous
  Country: JP (occurrence: JP)
  Receive Date: 20200324
  Receipt Date: 20200324
  Transmission Date: 20200409
  Serious: Yes (Hospitalization)
  Sender: FDA-Public Use
  Company Number: JP-ROCHE-2571233

PATIENT
  Age: 90 Year
  Sex: Female

DRUGS (6)
  1. EDIROL [Suspect]
     Active Substance: ELDECALCITOL
     Indication: OSTEOPOROSIS
     Route: 048
     Dates: start: 201811
  2. OLODATEROL HYDROCHLORIDE;TIOTROPIUM BROMIDE [Concomitant]
     Active Substance: OLODATEROL HYDROCHLORIDE\TIOTROPIUM BROMIDE MONOHYDRATE
  3. SULPIRIDE [Concomitant]
     Active Substance: SULPIRIDE
  4. DESPA [BENZALKONIUM CHLORIDE;CHLORHEXIDINE HYDROCHLORIDE;DIPHENHYDRAMI [Concomitant]
  5. BONVIVA [Suspect]
     Active Substance: IBANDRONATE SODIUM
     Indication: OSTEOPOROSIS
     Route: 042
  6. SENNOSIDE [SENNOSIDE A+B] [Concomitant]
     Active Substance: SENNOSIDES A AND B

REACTIONS (5)
  - Altered state of consciousness [Unknown]
  - Pneumonia [Unknown]
  - Hypercalcaemia [Recovered/Resolved]
  - Fall [Unknown]
  - Off label use [Unknown]

NARRATIVE: CASE EVENT DATE: 2019
